FAERS Safety Report 13648084 (Version 3)
Quarter: 2017Q2

REPORT INFORMATION
  Report Type: Report from Study
  Country: US (occurrence: US)
  Receive Date: 20170613
  Receipt Date: 20170629
  Transmission Date: 20170830
  Serious: Yes (Hospitalization)
  Sender: FDA-Public Use
  Company Number: US-JNJFOC-20170609079

PATIENT
  Age: 14 Year
  Sex: Female
  Weight: 50 kg

DRUGS (11)
  1. FERREX [Concomitant]
     Route: 065
  2. MERCAPTOPURINE. [Concomitant]
     Active Substance: MERCAPTOPURINE
     Route: 065
  3. ONDANSETRON [Concomitant]
     Active Substance: ONDANSETRON
     Route: 065
  4. LACTATED RINGERS [Concomitant]
     Active Substance: CALCIUM CHLORIDE\POTASSIUM CHLORIDE\SODIUM CHLORIDE\SODIUM LACTATE
     Route: 065
  5. HUMIRA [Concomitant]
     Active Substance: ADALIMUMAB
     Route: 065
     Dates: start: 20161227
  6. CHOLECALCIFEROL [Concomitant]
     Active Substance: CHOLECALCIFEROL
     Route: 065
  7. DEXMEDETOMIDINE. [Concomitant]
     Active Substance: DEXMEDETOMIDINE
     Route: 065
  8. VANCOCIN [Concomitant]
     Active Substance: VANCOMYCIN HYDROCHLORIDE
     Route: 065
  9. REMICADE [Suspect]
     Active Substance: INFLIXIMAB
     Indication: INFLAMMATORY BOWEL DISEASE
     Route: 042
     Dates: start: 20140428, end: 20161205
  10. PREDNISONE. [Suspect]
     Active Substance: PREDNISONE
     Indication: CHOLANGITIS SCLEROSING
     Route: 065
  11. PROPOFOL. [Concomitant]
     Active Substance: PROPOFOL
     Route: 065

REACTIONS (1)
  - Femoral neck fracture [Recovered/Resolved]

NARRATIVE: CASE EVENT DATE: 20170102
